FAERS Safety Report 14283956 (Version 1)
Quarter: 2017Q4

REPORT INFORMATION
  Report Type: Report from Study
  Country: SE (occurrence: SE)
  Receive Date: 20171214
  Receipt Date: 20171214
  Transmission Date: 20180321
  Serious: Yes (Other)
  Sender: FDA-Public Use
  Company Number: SE-ACCORD-062122

PATIENT
  Age: 76 Year
  Sex: Male

DRUGS (15)
  1. FOLINIC ACID [Suspect]
     Active Substance: LEUCOVORIN
     Indication: COLORECTAL CANCER METASTATIC
     Dates: start: 20150401, end: 20150401
  2. POTASSIUM [Concomitant]
     Active Substance: POTASSIUM
  3. SODIUM BICARBONATE. [Concomitant]
     Active Substance: SODIUM BICARBONATE
  4. AFLIBERCEPT [Suspect]
     Active Substance: AFLIBERCEPT
     Indication: COLORECTAL CANCER METASTATIC
     Dates: start: 20150401, end: 20150401
  5. RINOMAR [Concomitant]
  6. SODIUM CHLORIDE. [Concomitant]
     Active Substance: SODIUM CHLORIDE
  7. ZOPICLONE [Concomitant]
     Active Substance: ZOPICLONE
  8. LOPERAMIDE [Concomitant]
     Active Substance: LOPERAMIDE
  9. SIMETHICONE (DIMETHICONE) [Concomitant]
     Active Substance: DIMETHICONE
  10. OMEPRAZOLE. [Concomitant]
     Active Substance: OMEPRAZOLE
  11. RINOMAR [Concomitant]
  12. FLUOROURACIL. [Suspect]
     Active Substance: FLUOROURACIL
     Indication: COLORECTAL CANCER METASTATIC
     Dates: start: 20150401, end: 20150401
  13. MACROGOL 3350 [Concomitant]
     Active Substance: POLYETHYLENE GLYCOL 3350
  14. IRINOTECAN [Suspect]
     Active Substance: IRINOTECAN
     Indication: COLORECTAL CANCER METASTATIC
     Dates: start: 20150401, end: 20150401
  15. BUDESONIDE. [Concomitant]
     Active Substance: BUDESONIDE

REACTIONS (2)
  - Proteinuria [Not Recovered/Not Resolved]
  - Neutrophil count decreased [Recovered/Resolved]

NARRATIVE: CASE EVENT DATE: 20150404
